FAERS Safety Report 10219099 (Version 1)
Quarter: 2014Q2

REPORT INFORMATION
  Report Type: Spontaneous
  Country: US (occurrence: US)
  Receive Date: 20140605
  Receipt Date: 20140605
  Transmission Date: 20141212
  Serious: Yes (Other)
  Sender: FDA-Public Use
  Company Number: US-TEVA-486337USA

PATIENT
  Age: 42 Year
  Sex: Female
  Weight: 69.92 kg

DRUGS (2)
  1. PARAGARD 380A [Suspect]
     Indication: CONTRACEPTION
     Route: 015
     Dates: start: 20040623
  2. TEXADERA [Concomitant]
     Indication: MULTIPLE SCLEROSIS

REACTIONS (1)
  - Embedded device [Not Recovered/Not Resolved]
